FAERS Safety Report 11075732 (Version 8)
Quarter: 2015Q3

REPORT INFORMATION
  Report Type: Report from Study
  Country: DE (occurrence: DE)
  Receive Date: 20150429
  Receipt Date: 20150804
  Transmission Date: 20151125
  Serious: Yes (Hospitalization)
  Sender: FDA-Public Use
  Company Number: DE-009507513-1504DEU004661

PATIENT
  Age: 43 Year
  Sex: Female

DRUGS (10)
  1. DECORTIN [Concomitant]
     Active Substance: PREDNISONE
     Indication: ASPARTATE AMINOTRANSFERASE INCREASED
     Dosage: 100 MG, QD
     Route: 048
     Dates: start: 20150410, end: 20150412
  2. PEMBROLIZUMAB. [Suspect]
     Active Substance: PEMBROLIZUMAB
     Dosage: 2 MG/KG, Q3W (CYCLE 2)
     Route: 042
     Dates: start: 20150205, end: 20150205
  3. DECORTIN [Concomitant]
     Active Substance: PREDNISONE
     Indication: ASPARTATE AMINOTRANSFERASE INCREASED
     Dosage: 250 MG
     Route: 042
     Dates: start: 20150410, end: 20150412
  4. PEMBROLIZUMAB. [Suspect]
     Active Substance: PEMBROLIZUMAB
     Dosage: 2 MG/KG, Q3W (CYCLE 4)
     Route: 042
     Dates: start: 20150319, end: 20150319
  5. PEMBROLIZUMAB. [Suspect]
     Active Substance: PEMBROLIZUMAB
     Indication: METASTATIC MALIGNANT MELANOMA
     Dosage: 2 MG/KG, Q3W (CYCLE 1)
     Route: 042
     Dates: start: 20150113, end: 20150113
  6. DECORTIN [Concomitant]
     Active Substance: PREDNISONE
     Indication: BLOOD LACTATE DEHYDROGENASE INCREASED
  7. DECORTIN [Concomitant]
     Active Substance: PREDNISONE
     Indication: ALANINE AMINOTRANSFERASE INCREASED
  8. PEMBROLIZUMAB. [Suspect]
     Active Substance: PEMBROLIZUMAB
     Dosage: 2 MG/KG, Q3W (CYCLE 3)
     Route: 042
     Dates: start: 20150226, end: 20150226
  9. DECORTIN [Concomitant]
     Active Substance: PREDNISONE
     Indication: BLOOD LACTATE DEHYDROGENASE INCREASED
  10. DECORTIN [Concomitant]
     Active Substance: PREDNISONE
     Indication: ALANINE AMINOTRANSFERASE INCREASED

REACTIONS (5)
  - Gamma-glutamyltransferase increased [Recovered/Resolved]
  - Blood lactate dehydrogenase increased [Unknown]
  - Alanine aminotransferase increased [Recovered/Resolved]
  - Hypophysitis [Recovered/Resolved]
  - Aspartate aminotransferase increased [Recovered/Resolved]

NARRATIVE: CASE EVENT DATE: 20150421
